FAERS Safety Report 5344097-3 (Version None)
Quarter: 2007Q2

REPORT INFORMATION
  Report Type: 
  Country: None (occurrence: None)
  Receive Date: 20070604
  Receipt Date: 20070529
  Transmission Date: 20071010
  Serious: Yes (Other)
  Sender: FDA-Public Use
  Company Number: B0472905A

PATIENT

DRUGS (2)
  1. FORTUM [Suspect]
     Indication: SEPSIS
     Dosage: 40MGK UNKNOWN
     Route: 065
  2. NETILMICIN SULFATE [Concomitant]

REACTIONS (2)
  - DEAFNESS [None]
  - OFF LABEL USE [None]
